FAERS Safety Report 7990029-9 (Version None)
Quarter: 2011Q4

REPORT INFORMATION
  Report Type: 
  Country: None (occurrence: None)
  Receive Date: 20111219
  Receipt Date: 20101102
  Transmission Date: 20120403
  Serious: No
  Sender: FDA-Public Use
  Company Number: US-ASTRAZENECA-2010SE52003

PATIENT
  Age: 68 Year
  Sex: Male
  Weight: 79.8 kg

DRUGS (2)
  1. CRESTOR [Suspect]
     Indication: HYPERCHOLESTEROLAEMIA
     Route: 048
     Dates: start: 20100901, end: 20101001
  2. CRESTOR [Suspect]
     Route: 048
     Dates: start: 20101001

REACTIONS (2)
  - MYALGIA [None]
  - SPORTS INJURY [None]
